FAERS Safety Report 9282346 (Version 8)
Quarter: 2013Q4

REPORT INFORMATION
  Report Type: Report from Study
  Country: US (occurrence: US)
  Receive Date: 20130510
  Receipt Date: 20131031
  Transmission Date: 20140711
  Serious: Yes (Hospitalization)
  Sender: FDA-Public Use
  Company Number: US-PFIZER INC-2013142820

PATIENT
  Age: 74 Year
  Sex: Female
  Weight: 75.7 kg

DRUGS (11)
  1. NEXIUM [Concomitant]
     Indication: PROPHYLAXIS
     Dosage: 20 MG, DAILY
     Route: 048
     Dates: start: 20110705, end: 20121230
  2. BLINDED CELECOXIB [Suspect]
     Indication: OSTEOARTHRITIS
     Dosage: HIGH DOSE, TID
     Route: 048
     Dates: start: 20110512, end: 20121230
  3. BLINDED IBUPROFEN [Suspect]
     Indication: OSTEOARTHRITIS
     Dosage: HIGH DOSE, TID
     Route: 048
     Dates: start: 20110512, end: 20121230
  4. BLINDED IBUPROFEN [Suspect]
     Indication: OSTEOARTHRITIS
     Dosage: HIGH DOSE, TID
     Route: 048
     Dates: start: 20110512, end: 20121230
  5. BLINDED IBUPROFEN [Suspect]
     Indication: OSTEOARTHRITIS
     Dosage: HIGH DOSE, TID
     Route: 048
     Dates: start: 20110512, end: 20121230
  6. BLINDED NAPROXEN [Suspect]
     Indication: OSTEOARTHRITIS
     Dosage: HIGH DOSE, TID
     Route: 048
     Dates: start: 20110512, end: 20121230
  7. BLINDED NAPROXEN [Suspect]
     Indication: OSTEOARTHRITIS
     Dosage: HIGH DOSE, TID
     Route: 048
     Dates: start: 20110512, end: 20121230
  8. BLINDED NAPROXEN [Suspect]
     Indication: OSTEOARTHRITIS
     Dosage: HIGH DOSE, TID
     Route: 048
     Dates: start: 20110512, end: 20121230
  9. BLINDED PLACEBO [Suspect]
     Indication: OSTEOARTHRITIS
     Dosage: HIGH DOSE, TID
     Route: 048
     Dates: start: 20110512, end: 20121230
  10. LOSARTAN [Concomitant]
     Indication: HYPERTENSION
     Dosage: 50 MG, 2X/DAY
     Route: 048
     Dates: start: 20120928
  11. AMLODIPINE [Concomitant]
     Indication: HYPERTENSION
     Dosage: 5 MG, 2X/DAY
     Route: 048
     Dates: start: 20121113

REACTIONS (1)
  - Cerebrovascular accident [Recovered/Resolved]
